FAERS Safety Report 8638917 (Version 7)
Quarter: 2013Q1

REPORT INFORMATION
  Report Type: Report from Study
  Country: US (occurrence: US)
  Receive Date: 20120627
  Receipt Date: 20130326
  Transmission Date: 20140127
  Serious: Yes (Hospitalization)
  Sender: FDA-Public Use
  Company Number: US-ACTELION-A-US2010-36137

PATIENT
  Age: 64 Year
  Sex: Male

DRUGS (4)
  1. TRACLEER [Suspect]
     Indication: PULMONARY ARTERIAL HYPERTENSION
     Dosage: UNK
     Route: 048
     Dates: start: 20090720
  2. TRACLEER [Suspect]
     Route: 048
  3. NITROGLYCERINE [Concomitant]
  4. ASPIRIN [Concomitant]

REACTIONS (19)
  - Rib fracture [Unknown]
  - Surgery [Unknown]
  - Haemorrhage [Unknown]
  - Fall [Unknown]
  - Syncope [Unknown]
  - Transfusion [Unknown]
  - Pain [Unknown]
  - Back pain [Unknown]
  - Anaemia [Unknown]
  - Haemoglobin decreased [Unknown]
  - Dizziness [Unknown]
  - Swelling [Unknown]
  - Hypotension [Unknown]
  - Blood count abnormal [Unknown]
  - Fatigue [Unknown]
  - Asthenia [Unknown]
  - Joint injury [Unknown]
  - Pain [Unknown]
  - Spinal nerve stimulator implantation [Unknown]
